FAERS Safety Report 17961539 (Version 1)
Quarter: 2020Q2

REPORT INFORMATION
  Report Type: Spontaneous
  Country: US (occurrence: US)
  Receive Date: 20200630
  Receipt Date: 20200630
  Transmission Date: 20200714
  Serious: No
  Sender: FDA-Public Use
  Company Number: US-MYLANLABS-2020M1057680

PATIENT
  Sex: Female
  Weight: 63 kg

DRUGS (2)
  1. FENTANYL TRANSDERMAL SYSTEM [Suspect]
     Active Substance: FENTANYL
     Dosage: 50 MICROGRAM
     Route: 062
  2. FENTANYL TRANSDERMAL SYSTEM [Suspect]
     Active Substance: FENTANYL
     Indication: NEOPLASM MALIGNANT
     Dosage: 25 MICROGRAM
     Route: 062

REACTIONS (2)
  - Off label use [Unknown]
  - Drug ineffective for unapproved indication [Recovered/Resolved]
